FAERS Safety Report 7605351-5 (Version None)
Quarter: 2011Q3

REPORT INFORMATION
  Report Type: 
  Country: None (occurrence: None)
  Receive Date: 20110713
  Receipt Date: 20110707
  Transmission Date: 20111222
  Serious: No
  Sender: FDA-Public Use
  Company Number: CA-ELI_LILLY_AND_COMPANY-CA201107001686

PATIENT
  Sex: Female

DRUGS (8)
  1. RISPERIDONE [Concomitant]
  2. VALPROATE SODIUM [Concomitant]
  3. REMERON [Concomitant]
  4. ZYPREXA ZYDIS [Suspect]
     Dosage: 5 MG, UNK
  5. ZYPREXA [Suspect]
     Dosage: 5 MG, EACH EVENING
  6. ZYPREXA ZYDIS [Suspect]
     Dosage: 10 MG, PRN
  7. ZYPREXA [Suspect]
     Dosage: 2.5 MG, EACH EVENING
     Dates: start: 20030115
  8. CLONAZEPAM [Concomitant]

REACTIONS (6)
  - DIABETES MELLITUS [None]
  - WEIGHT INCREASED [None]
  - BLOOD CHOLESTEROL INCREASED [None]
  - PLATELET COUNT DECREASED [None]
  - BLOOD TRIGLYCERIDES INCREASED [None]
  - OVERDOSE [None]
